FAERS Safety Report 9529994 (Version 2)
Quarter: 2013Q3

REPORT INFORMATION
  Report Type: Spontaneous
  Country: EG (occurrence: EG)
  Receive Date: 20130917
  Receipt Date: 20130924
  Transmission Date: 20140515
  Serious: Yes (Death, Hospitalization)
  Sender: FDA-Public Use
  Company Number: PHHY2013EG103167

PATIENT
  Age: 38 Year
  Sex: 0

DRUGS (1)
  1. VOLTAREN [Suspect]
     Dosage: 1 DF, QD
     Route: 030

REACTIONS (7)
  - Coma hepatic [Fatal]
  - Depressed level of consciousness [Fatal]
  - Hepatic cirrhosis [Unknown]
  - Ascites [Unknown]
  - Jaundice [Unknown]
  - Concomitant disease progression [Unknown]
  - Hepatotoxicity [Unknown]
